FAERS Safety Report 9159780 (Version 1)
Quarter: 2013Q1

REPORT INFORMATION
  Report Type: Spontaneous
  Country: US (occurrence: None)
  Receive Date: 20130220
  Receipt Date: 20130220
  Transmission Date: 20140127
  Serious: Yes (Other)
  Sender: FDA-Public Use
  Company Number: AUR-APL-2013-01428

PATIENT
  Age: 37 Year
  Sex: Male

DRUGS (2)
  1. ZOLPIDEM (ZOLPIDEM) [Suspect]
     Indication: INSOMNIA
  2. BUPROPION (BUPROPION) [Suspect]
     Indication: NICOTINE DEPENDENCE

REACTIONS (11)
  - Insomnia [None]
  - Alcohol use [None]
  - Incoherent [None]
  - Disorientation [None]
  - Dehydration [None]
  - Aggression [None]
  - Incorrect dose administered [None]
  - Self injurious behaviour [None]
  - Abnormal dreams [None]
  - Anxiety [None]
  - Amnesia [None]
